FAERS Safety Report 12883568 (Version 1)
Quarter: 2016Q4

REPORT INFORMATION
  Report Type: Spontaneous
  Country: US (occurrence: US)
  Receive Date: 20161025
  Receipt Date: 20161025
  Transmission Date: 20170207
  Serious: No
  Sender: FDA-Public Use
  Company Number: US-ELI_LILLY_AND_COMPANY-US201610006752

PATIENT
  Sex: Male

DRUGS (3)
  1. METFORMIN [Concomitant]
     Active Substance: METFORMIN HYDROCHLORIDE
     Dosage: 500 MG, BID
     Route: 065
  2. HUMALOG [Suspect]
     Active Substance: INSULIN LISPRO
     Indication: DIABETES MELLITUS
     Dosage: 14 U, TID
     Route: 065
     Dates: start: 20160918
  3. LANTUS [Concomitant]
     Active Substance: INSULIN GLARGINE
     Dosage: 26 U, EACH EVENING
     Route: 065

REACTIONS (2)
  - Blood glucose increased [Unknown]
  - Underdose [Unknown]
